FAERS Safety Report 15824161 (Version 1)
Quarter: 2019Q1

REPORT INFORMATION
  Report Type: Spontaneous
  Country: FR (occurrence: FR)
  Receive Date: 20190114
  Receipt Date: 20190114
  Transmission Date: 20190417
  Serious: Yes (Hospitalization, Other)
  Sender: FDA-Public Use
  Company Number: FR-LUPIN PHARMACEUTICALS INC.-2019-00141

PATIENT
  Age: 30 Year
  Sex: Male
  Weight: 93 kg

DRUGS (1)
  1. POTASSIUM [Suspect]
     Active Substance: POTASSIUM
     Indication: PRODUCT USED FOR UNKNOWN INDICATION
     Dosage: 50 DF, SINGLE (15.6 G)
     Route: 048

REACTIONS (7)
  - Syncope [Unknown]
  - Prescription drug used without a prescription [Unknown]
  - Electrocardiogram ST segment elevation [Unknown]
  - Intentional overdose [Unknown]
  - Asthenia [Unknown]
  - Hyperkalaemia [Recovered/Resolved]
  - Suicide attempt [Unknown]
